FAERS Safety Report 5271158-X (Version None)
Quarter: 2007Q1

REPORT INFORMATION
  Report Type: 
  Country: None (occurrence: None)
  Receive Date: 20070321
  Receipt Date: 20070314
  Transmission Date: 20070707
  Serious: Yes (Hospitalization)
  Sender: FDA-Public Use
  Company Number: DE-BAYER-200710340BVD

PATIENT
  Age: 36 Year
  Sex: Male

DRUGS (3)
  1. MOXIFLOXACIN HCL [Suspect]
     Indication: CHOLECYSTITIS ACUTE
     Route: 065
  2. CIPROFLOXACIN HCL [Concomitant]
     Route: 065
  3. METRONIDAZOLE [Concomitant]
     Route: 065

REACTIONS (1)
  - BILIARY COLIC [None]
